FAERS Safety Report 6526420-7 (Version None)
Quarter: 2009Q4

REPORT INFORMATION
  Report Type: 
  Country: None (occurrence: None)
  Receive Date: 20091229
  Receipt Date: 20091215
  Transmission Date: 20100525
  Serious: Yes (Hospitalization)
  Sender: FDA-Public Use
  Company Number: 1-20962547

PATIENT
  Age: 48 Year
  Sex: Female
  Weight: 240 kg

DRUGS (3)
  1. FENTANYL-75 [Suspect]
     Indication: PROCEDURAL PAIN
     Dosage: EVERY 72 HRS, TRANSDERMAL
     Route: 062
     Dates: start: 20081001, end: 20081201
  2. VITAMIN D [Concomitant]
  3. IRON TABLET [Concomitant]

REACTIONS (4)
  - ANGINA PECTORIS [None]
  - CHEST PAIN [None]
  - PAINFUL RESPIRATION [None]
  - VOMITING [None]
